FAERS Safety Report 12550425 (Version 1)
Quarter: 2016Q3

REPORT INFORMATION
  Report Type: Spontaneous
  Country: JP (occurrence: JP)
  Receive Date: 20160712
  Receipt Date: 20160712
  Transmission Date: 20161109
  Serious: Yes (Other)
  Sender: FDA-Public Use
  Company Number: JP-HQ SPECIALTY-JP-2016INT000473

PATIENT
  Age: 76 Year
  Sex: Male

DRUGS (4)
  1. OTERACIL [Suspect]
     Active Substance: OTERACIL
     Indication: GASTRIC CANCER
     Dosage: UNK
  2. PACLITAXEL. [Suspect]
     Active Substance: PACLITAXEL
     Indication: GASTRIC CANCER
     Dosage: UNK
  3. GIMERACIL [Suspect]
     Active Substance: GIMERACIL
     Indication: GASTRIC CANCER
     Dosage: UNK
  4. TEGAFUR [Suspect]
     Active Substance: TEGAFUR
     Indication: GASTRIC CANCER
     Dosage: UNK

REACTIONS (1)
  - Peripheral nerve injury [Unknown]
